FAERS Safety Report 16727259 (Version 1)
Quarter: 2019Q3

REPORT INFORMATION
  Report Type: Spontaneous
  Country: CZ (occurrence: CZ)
  Receive Date: 20190822
  Receipt Date: 20190822
  Transmission Date: 20191005
  Serious: Yes (Life-Threatening, Other)
  Sender: FDA-Public Use
  Company Number: CZ-SA-2019SA220837

PATIENT
  Sex: Male

DRUGS (1)
  1. ZENARO [Suspect]
     Active Substance: LEVOCETIRIZINE
     Indication: HYPERSENSITIVITY
     Dosage: 1 DF, QD LONG-TERM MEDICATION
     Route: 065

REACTIONS (5)
  - Nausea [Recovered/Resolved]
  - Arrhythmia [Recovered/Resolved]
  - Palpitations [Recovered/Resolved]
  - Dermatitis allergic [Recovered/Resolved]
  - Fatigue [Recovered/Resolved]
